FAERS Safety Report 9718242 (Version 1)
Quarter: 2013Q4

REPORT INFORMATION
  Report Type: Spontaneous
  Country: US (occurrence: US)
  Receive Date: 20131125
  Receipt Date: 20131125
  Transmission Date: 20140711
  Serious: No
  Sender: FDA-Public Use
  Company Number: US-VIVUS-2013V1000107

PATIENT
  Age: 58 Year
  Sex: Female
  Weight: 118.04 kg

DRUGS (8)
  1. QSYMIA 7.5MG/46MG [Suspect]
     Indication: WEIGHT DECREASED
     Route: 048
     Dates: start: 201211
  2. QSYMIA 7.5MG/46MG [Suspect]
     Route: 048
     Dates: start: 201301
  3. QSYMIA 3.75MG/23MG [Suspect]
     Indication: WEIGHT DECREASED
     Route: 048
     Dates: start: 201210
  4. SYNTHROID [Concomitant]
     Indication: HYPOTHYROIDISM
     Route: 048
     Dates: start: 2007
  5. SYNTHROID [Concomitant]
     Route: 048
     Dates: start: 201212
  6. MELOXICAM [Concomitant]
     Indication: PAIN
     Route: 048
     Dates: start: 2009
  7. HYDROCHLOROTHIAZIDE [Concomitant]
     Indication: FLUID RETENTION
     Route: 048
     Dates: start: 2006
  8. VITAMIN D [Concomitant]
     Indication: VITAMIN SUPPLEMENTATION
     Dates: start: 201212

REACTIONS (1)
  - Blood thyroid stimulating hormone increased [Recovered/Resolved]
